FAERS Safety Report 12663865 (Version 1)
Quarter: 2016Q3

REPORT INFORMATION
  Report Type: Spontaneous
  Country: US (occurrence: US)
  Receive Date: 20160818
  Receipt Date: 20160818
  Transmission Date: 20161109
  Serious: Yes (Hospitalization, Other)
  Sender: FDA-Public Use
  Company Number: US-ABBVIE-16P-163-1699490-00

PATIENT
  Age: 31 Year
  Sex: Female

DRUGS (2)
  1. LUPRON DEPOT [Suspect]
     Active Substance: LEUPROLIDE ACETATE
     Indication: ENDOMETRIOSIS
     Route: 030
     Dates: start: 20160322, end: 20160517
  2. NORETHINDRONE. [Concomitant]
     Active Substance: NORETHINDRONE
     Indication: ENDOMETRIOSIS

REACTIONS (5)
  - Vaginal haemorrhage [Unknown]
  - Vaginal haemorrhage [Unknown]
  - Endometriosis [Unknown]
  - Haemoglobin decreased [Unknown]
  - Haemoglobin decreased [Unknown]

NARRATIVE: CASE EVENT DATE: 20160515
